FAERS Safety Report 6343934-3 (Version None)
Quarter: 2009Q3

REPORT INFORMATION
  Report Type: 
  Country: None (occurrence: None)
  Receive Date: 20090908
  Receipt Date: 20090827
  Transmission Date: 20100115
  Serious: Yes (Hospitalization)
  Sender: FDA-Public Use
  Company Number: FR-PFIZER-2009192334

PATIENT
  Age: 71 Year

DRUGS (4)
  1. LYRICA [Suspect]
     Dosage: 25 MG, 3X/DAY
  2. FLECAINIDE ACETATE [Concomitant]
  3. KARDEGIC [Concomitant]
  4. FRACTAL [Concomitant]

REACTIONS (2)
  - AMNESIA [None]
  - DEPRESSED LEVEL OF CONSCIOUSNESS [None]
